FAERS Safety Report 8574544-5 (Version None)
Quarter: 2012Q3

REPORT INFORMATION
  Report Type: 
  Country: None (occurrence: None)
  Receive Date: 20120806
  Receipt Date: 20120725
  Transmission Date: 20120928
  Serious: No
  Sender: FDA-Public Use
  Company Number: US-ROXANE LABORATORIES, INC.-2012-RO-01603RO

PATIENT
  Sex: Female

DRUGS (6)
  1. ASPARIN [Concomitant]
     Dosage: 81 MG
  2. VITAMIN D [Concomitant]
     Dosage: 81 MG
  3. FISH OIL [Concomitant]
  4. FLECAINIDE ACETATE [Suspect]
     Indication: ATRIAL FIBRILLATION
     Dosage: 100 MG
     Route: 048
     Dates: start: 20120611, end: 20120717
  5. METOPROLOL TARTRATE [Concomitant]
  6. BENICAR HCT [Concomitant]

REACTIONS (1)
  - COUGH [None]
